FAERS Safety Report 6391376-7 (Version None)
Quarter: 2009Q4

REPORT INFORMATION
  Report Type: 
  Country: None (occurrence: None)
  Receive Date: 20091006
  Receipt Date: 20091006
  Transmission Date: 20100525
  Serious: Yes (Other)
  Sender: FDA-Public Use
  Company Number: None

PATIENT
  Age: 66 Year
  Sex: Female
  Weight: 85.7298 kg

DRUGS (1)
  1. ASTELIN [Suspect]
     Indication: NASAL CONGESTION
     Dosage: 2 SPRAYS IN NOSE TWICE DAILY NASAL
     Route: 045
     Dates: start: 20090831, end: 20090902

REACTIONS (1)
  - HYPOSMIA [None]
